FAERS Safety Report 4269355-5 (Version None)
Quarter: 2004Q1

REPORT INFORMATION
  Report Type: 
  Country: None (occurrence: None)
  Receive Date: 20040108
  Receipt Date: 20031229
  Transmission Date: 20041129
  Serious: Yes (Hospitalization)
  Sender: FDA-Public Use
  Company Number: CIP03003480

PATIENT
  Age: 49 Year
  Sex: Female

DRUGS (3)
  1. BENET (RISEDRONATE SODIUM) TABLET, 2.5 MG [Suspect]
     Dosage: 2.5 MG DAILY, ORAL
     Route: 048
     Dates: start: 20031010, end: 20031222
  2. ADJUST-A (SENNA LEAF) [Concomitant]
  3. MYONAL (EPERISONE HYDROCHLORIDE) [Concomitant]

REACTIONS (6)
  - ARTHRALGIA [None]
  - C-REACTIVE PROTEIN INCREASED [None]
  - ERYTHEMA [None]
  - HAEMORRHAGE SUBCUTANEOUS [None]
  - RED BLOOD CELL SEDIMENTATION RATE INCREASED [None]
  - URTICARIA [None]
